FAERS Safety Report 24668029 (Version 1)
Quarter: 2024Q4

REPORT INFORMATION
  Report Type: Spontaneous
  Country: CA (occurrence: CA)
  Receive Date: 20241127
  Receipt Date: 20241127
  Transmission Date: 20250114
  Serious: Yes (Death, Life-Threatening, Hospitalization, Disabling, Other)
  Sender: Haleon PLC
  Company Number: CA-002147023-NVSC2024CA101302

PATIENT
  Age: 44 Year
  Sex: Female

DRUGS (477)
  1. DICLOFENAC SODIUM [Suspect]
     Active Substance: DICLOFENAC SODIUM
     Indication: Product used for unknown indication
     Route: 058
  2. DICLOFENAC SODIUM [Suspect]
     Active Substance: DICLOFENAC SODIUM
     Route: 048
  3. DICLOFENAC SODIUM [Suspect]
     Active Substance: DICLOFENAC SODIUM
     Route: 047
  4. DICLOFENAC SODIUM [Suspect]
     Active Substance: DICLOFENAC SODIUM
  5. CIMZIA [Suspect]
     Active Substance: CERTOLIZUMAB PEGOL
     Indication: Rheumatoid arthritis
     Route: 058
  6. CIMZIA [Suspect]
     Active Substance: CERTOLIZUMAB PEGOL
     Dosage: QD
     Route: 058
  7. CIMZIA [Suspect]
     Active Substance: CERTOLIZUMAB PEGOL
     Route: 058
  8. CIMZIA [Suspect]
     Active Substance: CERTOLIZUMAB PEGOL
     Route: 058
  9. CIMZIA [Suspect]
     Active Substance: CERTOLIZUMAB PEGOL
     Route: 058
  10. CIMZIA [Suspect]
     Active Substance: CERTOLIZUMAB PEGOL
     Route: 058
  11. CIMZIA [Suspect]
     Active Substance: CERTOLIZUMAB PEGOL
     Route: 058
  12. CIMZIA [Suspect]
     Active Substance: CERTOLIZUMAB PEGOL
     Route: 058
  13. CIMZIA [Suspect]
     Active Substance: CERTOLIZUMAB PEGOL
  14. CIMZIA [Suspect]
     Active Substance: CERTOLIZUMAB PEGOL
     Route: 058
  15. CIMZIA [Suspect]
     Active Substance: CERTOLIZUMAB PEGOL
     Route: 058
  16. LYRICA [Suspect]
     Active Substance: PREGABALIN
     Indication: Product used for unknown indication
  17. COSENTYX [Concomitant]
     Active Substance: SECUKINUMAB
     Indication: Product used for unknown indication
     Dosage: PRE FILLED SYRINGE (DEVICE) (SECUKINUMAB)
  18. MYCOPHENOLATE MOFETIL [Suspect]
     Active Substance: MYCOPHENOLATE MOFETIL
     Indication: Product used for unknown indication
  19. TRIAMCINOLONE ACETONIDE [Suspect]
     Active Substance: TRIAMCINOLONE ACETONIDE
     Indication: Rheumatoid arthritis
     Dosage: (SUSPENSION INTRA-ARTICULAR)
     Route: 013
  20. CETIRIZINE HYDROCHLORIDE [Suspect]
     Active Substance: CETIRIZINE HYDROCHLORIDE
     Indication: Rheumatoid arthritis
     Route: 048
  21. CETIRIZINE HYDROCHLORIDE [Suspect]
     Active Substance: CETIRIZINE HYDROCHLORIDE
     Route: 048
  22. CETIRIZINE HYDROCHLORIDE [Suspect]
     Active Substance: CETIRIZINE HYDROCHLORIDE
     Route: 048
  23. CETIRIZINE HYDROCHLORIDE [Suspect]
     Active Substance: CETIRIZINE HYDROCHLORIDE
     Route: 048
  24. CETIRIZINE HYDROCHLORIDE [Suspect]
     Active Substance: CETIRIZINE HYDROCHLORIDE
     Route: 048
  25. CETIRIZINE HYDROCHLORIDE [Suspect]
     Active Substance: CETIRIZINE HYDROCHLORIDE
     Route: 048
  26. CETIRIZINE HYDROCHLORIDE [Suspect]
     Active Substance: CETIRIZINE HYDROCHLORIDE
     Route: 048
  27. CETIRIZINE HYDROCHLORIDE [Suspect]
     Active Substance: CETIRIZINE HYDROCHLORIDE
     Route: 048
  28. CETIRIZINE HYDROCHLORIDE [Suspect]
     Active Substance: CETIRIZINE HYDROCHLORIDE
     Route: 048
  29. CETIRIZINE HYDROCHLORIDE [Suspect]
     Active Substance: CETIRIZINE HYDROCHLORIDE
     Route: 048
  30. COSENTYX [Suspect]
     Active Substance: SECUKINUMAB
     Indication: Rheumatoid arthritis
     Route: 005
  31. COSENTYX [Suspect]
     Active Substance: SECUKINUMAB
     Indication: Psoriatic arthropathy
     Route: 005
  32. COSENTYX [Suspect]
     Active Substance: SECUKINUMAB
  33. COSENTYX [Suspect]
     Active Substance: SECUKINUMAB
  34. SULFASALAZINE [Suspect]
     Active Substance: SULFASALAZINE
     Indication: Rheumatoid arthritis
     Route: 048
  35. SULFASALAZINE [Suspect]
     Active Substance: SULFASALAZINE
     Route: 048
  36. SULFASALAZINE [Suspect]
     Active Substance: SULFASALAZINE
     Route: 048
  37. SULFASALAZINE [Suspect]
     Active Substance: SULFASALAZINE
     Route: 048
  38. SULFASALAZINE [Suspect]
     Active Substance: SULFASALAZINE
     Dosage: QD
     Route: 048
  39. SULFASALAZINE [Suspect]
     Active Substance: SULFASALAZINE
     Route: 048
  40. SULFASALAZINE [Suspect]
     Active Substance: SULFASALAZINE
     Route: 048
  41. SULFASALAZINE [Suspect]
     Active Substance: SULFASALAZINE
     Route: 065
  42. SULFASALAZINE [Suspect]
     Active Substance: SULFASALAZINE
     Route: 048
  43. SULFASALAZINE [Suspect]
     Active Substance: SULFASALAZINE
     Route: 048
  44. SULFASALAZINE [Suspect]
     Active Substance: SULFASALAZINE
     Route: 048
  45. SULFASALAZINE [Suspect]
     Active Substance: SULFASALAZINE
     Route: 048
  46. SULFASALAZINE [Suspect]
     Active Substance: SULFASALAZINE
     Route: 048
  47. SULFASALAZINE [Suspect]
     Active Substance: SULFASALAZINE
     Route: 048
  48. SULFASALAZINE [Suspect]
     Active Substance: SULFASALAZINE
     Route: 048
  49. SULFASALAZINE [Suspect]
     Active Substance: SULFASALAZINE
     Route: 048
  50. SULFASALAZINE [Suspect]
     Active Substance: SULFASALAZINE
     Route: 048
  51. SULFASALAZINE [Suspect]
     Active Substance: SULFASALAZINE
     Route: 048
  52. SULFASALAZINE [Suspect]
     Active Substance: SULFASALAZINE
     Route: 048
  53. SULFASALAZINE [Suspect]
     Active Substance: SULFASALAZINE
     Route: 048
  54. SULFASALAZINE [Suspect]
     Active Substance: SULFASALAZINE
     Route: 048
  55. SULFASALAZINE [Suspect]
     Active Substance: SULFASALAZINE
     Route: 048
  56. SULFASALAZINE [Suspect]
     Active Substance: SULFASALAZINE
     Route: 048
  57. SULFASALAZINE [Suspect]
     Active Substance: SULFASALAZINE
     Route: 048
  58. SULFASALAZINE [Suspect]
     Active Substance: SULFASALAZINE
     Dosage: QD
  59. SULFASALAZINE [Suspect]
     Active Substance: SULFASALAZINE
     Route: 048
  60. SULFASALAZINE [Suspect]
     Active Substance: SULFASALAZINE
     Route: 048
  61. SULFASALAZINE [Suspect]
     Active Substance: SULFASALAZINE
     Route: 048
  62. SULFASALAZINE [Suspect]
     Active Substance: SULFASALAZINE
     Route: 048
  63. SULFASALAZINE [Suspect]
     Active Substance: SULFASALAZINE
     Route: 048
  64. SULFASALAZINE [Suspect]
     Active Substance: SULFASALAZINE
     Route: 048
  65. SULFASALAZINE [Suspect]
     Active Substance: SULFASALAZINE
  66. SULFASALAZINE [Suspect]
     Active Substance: SULFASALAZINE
  67. SULFASALAZINE [Suspect]
     Active Substance: SULFASALAZINE
  68. SULFASALAZINE [Suspect]
     Active Substance: SULFASALAZINE
  69. SULFASALAZINE [Suspect]
     Active Substance: SULFASALAZINE
  70. SULFASALAZINE [Suspect]
     Active Substance: SULFASALAZINE
  71. HYDROCORTISONE BUTYRATE [Suspect]
     Active Substance: HYDROCORTISONE BUTYRATE
     Indication: Rheumatoid arthritis
     Route: 058
  72. HYDROCORTISONE BUTYRATE [Suspect]
     Active Substance: HYDROCORTISONE BUTYRATE
     Route: 058
  73. ORENCIA [Suspect]
     Active Substance: ABATACEPT
     Indication: Rheumatoid arthritis
     Route: 058
  74. ORENCIA [Suspect]
     Active Substance: ABATACEPT
     Route: 058
  75. ORENCIA [Suspect]
     Active Substance: ABATACEPT
     Route: 058
  76. ORENCIA [Suspect]
     Active Substance: ABATACEPT
     Route: 058
  77. ORENCIA [Suspect]
     Active Substance: ABATACEPT
     Route: 058
  78. ORENCIA [Suspect]
     Active Substance: ABATACEPT
     Route: 058
  79. ORENCIA [Suspect]
     Active Substance: ABATACEPT
     Route: 042
  80. ORENCIA [Suspect]
     Active Substance: ABATACEPT
  81. ORENCIA [Suspect]
     Active Substance: ABATACEPT
  82. ORENCIA [Suspect]
     Active Substance: ABATACEPT
  83. ORENCIA [Suspect]
     Active Substance: ABATACEPT
     Route: 058
  84. ORENCIA [Suspect]
     Active Substance: ABATACEPT
     Route: 058
  85. ORENCIA [Suspect]
     Active Substance: ABATACEPT
     Route: 058
  86. ORENCIA [Suspect]
     Active Substance: ABATACEPT
  87. CALTRATE [Suspect]
     Active Substance: CALCIUM CARBONATE
     Indication: Product used for unknown indication
  88. PSEUDOEPHEDRINE HYDROCHLORIDE\TRIPROLIDINE HYDROCHLORIDE [Suspect]
     Active Substance: PSEUDOEPHEDRINE HYDROCHLORIDE\TRIPROLIDINE HYDROCHLORIDE
     Indication: Rheumatoid arthritis
  89. PSEUDOEPHEDRINE HYDROCHLORIDE\TRIPROLIDINE HYDROCHLORIDE [Suspect]
     Active Substance: PSEUDOEPHEDRINE HYDROCHLORIDE\TRIPROLIDINE HYDROCHLORIDE
  90. PSEUDOEPHEDRINE HYDROCHLORIDE\TRIPROLIDINE HYDROCHLORIDE [Suspect]
     Active Substance: PSEUDOEPHEDRINE HYDROCHLORIDE\TRIPROLIDINE HYDROCHLORIDE
  91. PSEUDOEPHEDRINE HYDROCHLORIDE\TRIPROLIDINE HYDROCHLORIDE [Suspect]
     Active Substance: PSEUDOEPHEDRINE HYDROCHLORIDE\TRIPROLIDINE HYDROCHLORIDE
  92. PSEUDOEPHEDRINE HYDROCHLORIDE\TRIPROLIDINE HYDROCHLORIDE [Suspect]
     Active Substance: PSEUDOEPHEDRINE HYDROCHLORIDE\TRIPROLIDINE HYDROCHLORIDE
  93. ADALIMUMAB [Suspect]
     Active Substance: ADALIMUMAB
     Indication: Psoriatic arthropathy
     Route: 058
  94. ADALIMUMAB [Suspect]
     Active Substance: ADALIMUMAB
     Route: 048
  95. ADALIMUMAB [Suspect]
     Active Substance: ADALIMUMAB
     Route: 058
  96. ALENDRONIC ACID [Suspect]
     Active Substance: ALENDRONIC ACID
     Indication: Rheumatoid arthritis
     Route: 048
  97. ALENDRONIC ACID [Suspect]
     Active Substance: ALENDRONIC ACID
     Route: 065
  98. ALENDRONIC ACID [Suspect]
     Active Substance: ALENDRONIC ACID
     Route: 048
  99. ALENDRONIC ACID [Suspect]
     Active Substance: ALENDRONIC ACID
     Route: 048
  100. ALENDRONIC ACID [Suspect]
     Active Substance: ALENDRONIC ACID
     Route: 048
  101. PHTHALYLSULFATHIAZOLE [Suspect]
     Active Substance: PHTHALYLSULFATHIAZOLE
     Indication: Rheumatoid arthritis
     Route: 048
  102. PHTHALYLSULFATHIAZOLE [Suspect]
     Active Substance: PHTHALYLSULFATHIAZOLE
     Route: 016
  103. PHTHALYLSULFATHIAZOLE [Suspect]
     Active Substance: PHTHALYLSULFATHIAZOLE
     Route: 042
  104. PHTHALYLSULFATHIAZOLE [Suspect]
     Active Substance: PHTHALYLSULFATHIAZOLE
     Route: 048
  105. PHTHALYLSULFATHIAZOLE [Suspect]
     Active Substance: PHTHALYLSULFATHIAZOLE
     Dosage: BID
     Route: 048
  106. PHTHALYLSULFATHIAZOLE [Suspect]
     Active Substance: PHTHALYLSULFATHIAZOLE
     Dosage: BID
     Route: 048
  107. PHTHALYLSULFATHIAZOLE [Suspect]
     Active Substance: PHTHALYLSULFATHIAZOLE
  108. PHTHALYLSULFATHIAZOLE [Suspect]
     Active Substance: PHTHALYLSULFATHIAZOLE
  109. PHTHALYLSULFATHIAZOLE [Suspect]
     Active Substance: PHTHALYLSULFATHIAZOLE
     Route: 048
  110. PHTHALYLSULFATHIAZOLE [Suspect]
     Active Substance: PHTHALYLSULFATHIAZOLE
     Route: 048
  111. PHTHALYLSULFATHIAZOLE [Suspect]
     Active Substance: PHTHALYLSULFATHIAZOLE
  112. TUMS [Suspect]
     Active Substance: CALCIUM CARBONATE
     Indication: Product used for unknown indication
     Route: 065
  113. TUMS [Suspect]
     Active Substance: CALCIUM CARBONATE
  114. DESOXIMETASONE [Suspect]
     Active Substance: DESOXIMETASONE
     Indication: Rheumatoid arthritis
     Route: 003
  115. DESOXIMETASONE [Suspect]
     Active Substance: DESOXIMETASONE
     Route: 061
  116. DESOXIMETASONE [Suspect]
     Active Substance: DESOXIMETASONE
     Route: 048
  117. DESOXIMETASONE [Suspect]
     Active Substance: DESOXIMETASONE
     Route: 003
  118. DESOXIMETASONE [Suspect]
     Active Substance: DESOXIMETASONE
     Route: 003
  119. DESOXIMETASONE [Suspect]
     Active Substance: DESOXIMETASONE
  120. DESOXIMETASONE [Suspect]
     Active Substance: DESOXIMETASONE
     Route: 061
  121. DESOXIMETASONE [Suspect]
     Active Substance: DESOXIMETASONE
     Route: 048
  122. DESOXIMETASONE [Suspect]
     Active Substance: DESOXIMETASONE
     Route: 058
  123. DESOXIMETASONE [Suspect]
     Active Substance: DESOXIMETASONE
     Route: 048
  124. DESOXIMETASONE [Suspect]
     Active Substance: DESOXIMETASONE
     Route: 003
  125. DESOXIMETASONE [Suspect]
     Active Substance: DESOXIMETASONE
     Route: 061
  126. DESOXIMETASONE [Suspect]
     Active Substance: DESOXIMETASONE
     Route: 042
  127. DESOXIMETASONE [Suspect]
     Active Substance: DESOXIMETASONE
     Route: 048
  128. DESOXIMETASONE [Suspect]
     Active Substance: DESOXIMETASONE
     Route: 058
  129. DESOXIMETASONE [Suspect]
     Active Substance: DESOXIMETASONE
     Route: 003
  130. DESOXIMETASONE [Suspect]
     Active Substance: DESOXIMETASONE
     Route: 048
  131. DESOXIMETASONE [Suspect]
     Active Substance: DESOXIMETASONE
     Route: 048
  132. DESOXIMETASONE [Suspect]
     Active Substance: DESOXIMETASONE
     Route: 058
  133. DESOXIMETASONE [Suspect]
     Active Substance: DESOXIMETASONE
     Route: 048
  134. DESOXIMETASONE [Suspect]
     Active Substance: DESOXIMETASONE
     Route: 058
  135. DESOXIMETASONE [Suspect]
     Active Substance: DESOXIMETASONE
     Route: 003
  136. DESOXIMETASONE [Suspect]
     Active Substance: DESOXIMETASONE
  137. DESOXIMETASONE [Suspect]
     Active Substance: DESOXIMETASONE
     Route: 048
  138. DESOXIMETASONE [Suspect]
     Active Substance: DESOXIMETASONE
     Route: 003
  139. DESOXIMETASONE [Suspect]
     Active Substance: DESOXIMETASONE
  140. DESOXIMETASONE [Suspect]
     Active Substance: DESOXIMETASONE
     Route: 003
  141. DESOXIMETASONE [Suspect]
     Active Substance: DESOXIMETASONE
     Route: 058
  142. DESOXIMETASONE [Suspect]
     Active Substance: DESOXIMETASONE
     Route: 048
  143. DESOXIMETASONE [Suspect]
     Active Substance: DESOXIMETASONE
     Route: 048
  144. DESOXIMETASONE [Suspect]
     Active Substance: DESOXIMETASONE
     Route: 061
  145. DESOXIMETASONE [Suspect]
     Active Substance: DESOXIMETASONE
  146. DESOXIMETASONE [Suspect]
     Active Substance: DESOXIMETASONE
     Route: 058
  147. DESOXIMETASONE [Suspect]
     Active Substance: DESOXIMETASONE
  148. DESOXIMETASONE [Suspect]
     Active Substance: DESOXIMETASONE
  149. DESOXIMETASONE [Suspect]
     Active Substance: DESOXIMETASONE
     Route: 058
  150. DESOXIMETASONE [Suspect]
     Active Substance: DESOXIMETASONE
     Route: 061
  151. DESOXIMETASONE [Suspect]
     Active Substance: DESOXIMETASONE
  152. DESOXIMETASONE [Suspect]
     Active Substance: DESOXIMETASONE
     Route: 048
  153. DESOXIMETASONE [Suspect]
     Active Substance: DESOXIMETASONE
     Route: 003
  154. DESOXIMETASONE [Suspect]
     Active Substance: DESOXIMETASONE
     Route: 061
  155. DESOXIMETASONE [Suspect]
     Active Substance: DESOXIMETASONE
     Route: 003
  156. DESOXIMETASONE [Suspect]
     Active Substance: DESOXIMETASONE
     Dosage: 1 EVERY 1 WEEKS
     Route: 058
  157. DESOXIMETASONE [Suspect]
     Active Substance: DESOXIMETASONE
     Route: 048
  158. DESOXIMETASONE [Suspect]
     Active Substance: DESOXIMETASONE
     Route: 048
  159. DESOXIMETASONE [Suspect]
     Active Substance: DESOXIMETASONE
     Route: 048
  160. DESOXIMETASONE [Suspect]
     Active Substance: DESOXIMETASONE
     Route: 058
  161. DESOXIMETASONE [Suspect]
     Active Substance: DESOXIMETASONE
     Route: 048
  162. DESOXIMETASONE [Suspect]
     Active Substance: DESOXIMETASONE
     Route: 003
  163. VITAMIN C [Suspect]
     Active Substance: ASCORBIC ACID
     Indication: Product used for unknown indication
     Route: 016
  164. VITAMIN C [Suspect]
     Active Substance: ASCORBIC ACID
  165. OXYCODONE [Suspect]
     Active Substance: OXYCODONE
     Indication: Product used for unknown indication
  166. OXYCODONE [Suspect]
     Active Substance: OXYCODONE
  167. OXYCODONE [Suspect]
     Active Substance: OXYCODONE
  168. XELJANZ [Suspect]
     Active Substance: TOFACITINIB CITRATE
     Indication: Rheumatoid arthritis
     Route: 048
  169. XELJANZ [Suspect]
     Active Substance: TOFACITINIB CITRATE
     Route: 048
  170. XELJANZ [Suspect]
     Active Substance: TOFACITINIB CITRATE
  171. XELJANZ [Suspect]
     Active Substance: TOFACITINIB CITRATE
  172. XELJANZ [Suspect]
     Active Substance: TOFACITINIB CITRATE
  173. XELJANZ [Suspect]
     Active Substance: TOFACITINIB CITRATE
     Route: 048
  174. XELJANZ [Suspect]
     Active Substance: TOFACITINIB CITRATE
     Route: 048
  175. XELJANZ [Suspect]
     Active Substance: TOFACITINIB CITRATE
  176. HYDROXYCHLOROQUINE SULFATE [Suspect]
     Active Substance: HYDROXYCHLOROQUINE SULFATE
     Indication: Systemic lupus erythematosus
     Route: 048
  177. HYDROXYCHLOROQUINE SULFATE [Suspect]
     Active Substance: HYDROXYCHLOROQUINE SULFATE
     Indication: Rheumatoid arthritis
     Route: 048
  178. HYDROXYCHLOROQUINE SULFATE [Suspect]
     Active Substance: HYDROXYCHLOROQUINE SULFATE
     Route: 058
  179. HYDROXYCHLOROQUINE SULFATE [Suspect]
     Active Substance: HYDROXYCHLOROQUINE SULFATE
  180. ACETAMINOPHEN\CODEINE PHOSPHATE [Suspect]
     Active Substance: ACETAMINOPHEN\CODEINE PHOSPHATE
     Indication: Rheumatoid arthritis
     Route: 065
  181. HUMIRA [Suspect]
     Active Substance: ADALIMUMAB
     Indication: Rheumatoid arthritis
     Route: 058
  182. HUMIRA [Suspect]
     Active Substance: ADALIMUMAB
     Indication: Psoriatic arthropathy
     Route: 058
  183. HUMIRA [Suspect]
     Active Substance: ADALIMUMAB
     Route: 058
  184. HUMIRA [Suspect]
     Active Substance: ADALIMUMAB
     Route: 058
  185. HUMIRA [Suspect]
     Active Substance: ADALIMUMAB
     Route: 058
  186. HUMIRA [Suspect]
     Active Substance: ADALIMUMAB
     Route: 058
  187. HUMIRA [Suspect]
     Active Substance: ADALIMUMAB
     Route: 058
  188. HUMIRA [Suspect]
     Active Substance: ADALIMUMAB
     Route: 058
  189. HUMIRA [Suspect]
     Active Substance: ADALIMUMAB
     Route: 058
  190. HUMIRA [Suspect]
     Active Substance: ADALIMUMAB
     Route: 058
  191. HUMIRA [Suspect]
     Active Substance: ADALIMUMAB
     Route: 058
  192. HUMIRA [Suspect]
     Active Substance: ADALIMUMAB
  193. HUMIRA [Suspect]
     Active Substance: ADALIMUMAB
  194. METHOTREXATE [Suspect]
     Active Substance: METHOTREXATE
     Indication: Rheumatoid arthritis
     Route: 013
  195. METHOTREXATE [Suspect]
     Active Substance: METHOTREXATE
     Route: 013
  196. METHOTREXATE [Suspect]
     Active Substance: METHOTREXATE
     Route: 058
  197. METHOTREXATE [Suspect]
     Active Substance: METHOTREXATE
     Route: 048
  198. METHOTREXATE [Suspect]
     Active Substance: METHOTREXATE
     Route: 013
  199. METHOTREXATE [Suspect]
     Active Substance: METHOTREXATE
     Route: 058
  200. METHOTREXATE [Suspect]
     Active Substance: METHOTREXATE
     Route: 048
  201. METHOTREXATE [Suspect]
     Active Substance: METHOTREXATE
     Route: 048
  202. METHOTREXATE [Suspect]
     Active Substance: METHOTREXATE
     Route: 013
  203. METHOTREXATE [Suspect]
     Active Substance: METHOTREXATE
     Dosage: BID
  204. METHOTREXATE [Suspect]
     Active Substance: METHOTREXATE
     Route: 058
  205. METHOTREXATE [Suspect]
     Active Substance: METHOTREXATE
     Route: 048
  206. METHOTREXATE [Suspect]
     Active Substance: METHOTREXATE
     Route: 048
  207. METHOTREXATE [Suspect]
     Active Substance: METHOTREXATE
  208. METHOTREXATE [Suspect]
     Active Substance: METHOTREXATE
     Route: 048
  209. METHOTREXATE [Suspect]
     Active Substance: METHOTREXATE
     Route: 048
  210. METHOTREXATE [Suspect]
     Active Substance: METHOTREXATE
     Route: 048
  211. METHOTREXATE [Suspect]
     Active Substance: METHOTREXATE
     Dosage: INTRAARTERIAL USE
  212. METHOTREXATE [Suspect]
     Active Substance: METHOTREXATE
     Route: 048
  213. METHOTREXATE [Suspect]
     Active Substance: METHOTREXATE
     Route: 048
  214. METHOTREXATE [Suspect]
     Active Substance: METHOTREXATE
     Route: 058
  215. METHOTREXATE [Suspect]
     Active Substance: METHOTREXATE
     Route: 037
  216. METHOTREXATE [Suspect]
     Active Substance: METHOTREXATE
     Route: 048
  217. METHOTREXATE [Suspect]
     Active Substance: METHOTREXATE
     Dosage: QW
     Route: 058
  218. METHOTREXATE [Suspect]
     Active Substance: METHOTREXATE
     Route: 048
  219. METHOTREXATE [Suspect]
     Active Substance: METHOTREXATE
     Route: 048
  220. METHOTREXATE [Suspect]
     Active Substance: METHOTREXATE
     Route: 048
  221. METHOTREXATE [Suspect]
     Active Substance: METHOTREXATE
     Route: 048
  222. METHOTREXATE [Suspect]
     Active Substance: METHOTREXATE
     Route: 048
  223. METHOTREXATE [Suspect]
     Active Substance: METHOTREXATE
     Route: 048
  224. METHOTREXATE [Suspect]
     Active Substance: METHOTREXATE
     Dosage: QD
     Route: 058
  225. METHOTREXATE [Suspect]
     Active Substance: METHOTREXATE
     Route: 048
  226. METHOTREXATE [Suspect]
     Active Substance: METHOTREXATE
     Route: 048
  227. METHOTREXATE [Suspect]
     Active Substance: METHOTREXATE
     Route: 048
  228. METHOTREXATE [Suspect]
     Active Substance: METHOTREXATE
     Route: 058
  229. METHOTREXATE [Suspect]
     Active Substance: METHOTREXATE
     Route: 058
  230. METHOTREXATE [Suspect]
     Active Substance: METHOTREXATE
     Route: 048
  231. METHOTREXATE [Suspect]
     Active Substance: METHOTREXATE
     Route: 048
  232. METHOTREXATE [Suspect]
     Active Substance: METHOTREXATE
     Dosage: BID
  233. METHOTREXATE [Suspect]
     Active Substance: METHOTREXATE
     Route: 048
  234. METHOTREXATE [Suspect]
     Active Substance: METHOTREXATE
  235. METHOTREXATE [Suspect]
     Active Substance: METHOTREXATE
  236. METHOTREXATE [Suspect]
     Active Substance: METHOTREXATE
  237. METHOTREXATE [Suspect]
     Active Substance: METHOTREXATE
  238. METHOTREXATE [Suspect]
     Active Substance: METHOTREXATE
  239. METHOTREXATE [Suspect]
     Active Substance: METHOTREXATE
     Route: 048
  240. SULFASALAZINE [Suspect]
     Active Substance: SULFASALAZINE
     Indication: Rheumatoid arthritis
     Route: 048
  241. SULFASALAZINE [Suspect]
     Active Substance: SULFASALAZINE
     Dosage: BID
     Route: 048
  242. SULFASALAZINE [Suspect]
     Active Substance: SULFASALAZINE
     Route: 048
  243. SULFASALAZINE [Suspect]
     Active Substance: SULFASALAZINE
     Dosage: BID
  244. SULFASALAZINE [Suspect]
     Active Substance: SULFASALAZINE
     Route: 048
  245. SULFASALAZINE [Suspect]
     Active Substance: SULFASALAZINE
     Route: 048
  246. SULFASALAZINE [Suspect]
     Active Substance: SULFASALAZINE
  247. SULFASALAZINE [Suspect]
     Active Substance: SULFASALAZINE
     Route: 048
  248. SULFASALAZINE [Suspect]
     Active Substance: SULFASALAZINE
     Route: 048
  249. CHLORHEXIDINE GLUCONATE [Suspect]
     Active Substance: CHLORHEXIDINE GLUCONATE
     Indication: Product used for unknown indication
     Route: 002
  250. CHLORHEXIDINE GLUCONATE [Suspect]
     Active Substance: CHLORHEXIDINE GLUCONATE
     Route: 061
  251. CHLORHEXIDINE GLUCONATE [Suspect]
     Active Substance: CHLORHEXIDINE GLUCONATE
     Route: 048
  252. ALENDRONATE SODIUM [Suspect]
     Active Substance: ALENDRONATE SODIUM
     Indication: Rheumatoid arthritis
     Route: 065
  253. ACTEMRA [Suspect]
     Active Substance: TOCILIZUMAB
     Indication: Rheumatoid arthritis
     Route: 042
  254. ACTEMRA [Suspect]
     Active Substance: TOCILIZUMAB
     Route: 042
  255. ACTEMRA [Suspect]
     Active Substance: TOCILIZUMAB
     Route: 042
  256. ACTEMRA [Suspect]
     Active Substance: TOCILIZUMAB
     Route: 042
  257. ACTEMRA [Suspect]
     Active Substance: TOCILIZUMAB
     Route: 042
  258. ACTEMRA [Suspect]
     Active Substance: TOCILIZUMAB
     Route: 042
  259. ACTEMRA [Suspect]
     Active Substance: TOCILIZUMAB
     Route: 042
  260. ACTEMRA [Suspect]
     Active Substance: TOCILIZUMAB
     Route: 042
  261. ACTEMRA [Suspect]
     Active Substance: TOCILIZUMAB
     Route: 042
  262. ACTEMRA [Suspect]
     Active Substance: TOCILIZUMAB
     Route: 042
  263. ACTEMRA [Suspect]
     Active Substance: TOCILIZUMAB
     Route: 042
  264. ACTEMRA [Suspect]
     Active Substance: TOCILIZUMAB
     Route: 042
  265. ACTEMRA [Suspect]
     Active Substance: TOCILIZUMAB
     Route: 042
  266. ACTEMRA [Suspect]
     Active Substance: TOCILIZUMAB
  267. ACTEMRA [Suspect]
     Active Substance: TOCILIZUMAB
  268. ACTEMRA [Suspect]
     Active Substance: TOCILIZUMAB
  269. CALTRATE [Suspect]
     Active Substance: CALCIUM CARBONATE
     Indication: Product used for unknown indication
  270. ERELZI [Suspect]
     Active Substance: ETANERCEPT-SZZS
     Indication: Rheumatoid arthritis
     Route: 058
  271. ERELZI [Suspect]
     Active Substance: ETANERCEPT-SZZS
  272. PREDNISONE [Suspect]
     Active Substance: PREDNISONE
     Indication: Rheumatoid arthritis
     Route: 048
  273. PREDNISONE [Suspect]
     Active Substance: PREDNISONE
     Route: 048
  274. PREDNISONE [Suspect]
     Active Substance: PREDNISONE
     Route: 065
  275. PREDNISONE [Suspect]
     Active Substance: PREDNISONE
  276. REMICADE [Suspect]
     Active Substance: INFLIXIMAB
     Indication: Rheumatoid arthritis
     Route: 042
  277. REMICADE [Suspect]
     Active Substance: INFLIXIMAB
     Dosage: UNK (POWDER FOR SOLUTION INTRAVENOUS)
  278. NAPROXEN SODIUM [Suspect]
     Active Substance: NAPROXEN SODIUM
     Indication: Rheumatoid arthritis
     Dosage: BID
  279. NAPROXEN SODIUM [Suspect]
     Active Substance: NAPROXEN SODIUM
  280. NAPROXEN SODIUM [Suspect]
     Active Substance: NAPROXEN SODIUM
  281. NAPROXEN SODIUM [Suspect]
     Active Substance: NAPROXEN SODIUM
  282. NAPROXEN SODIUM [Suspect]
     Active Substance: NAPROXEN SODIUM
  283. CHLORAPREP [Suspect]
     Active Substance: CHLORHEXIDINE GLUCONATE\ISOPROPYL ALCOHOL
     Indication: Product used for unknown indication
     Route: 061
  284. CHLORAPREP [Suspect]
     Active Substance: CHLORHEXIDINE GLUCONATE\ISOPROPYL ALCOHOL
     Route: 061
  285. HYDROCORTISONE SODIUM SUCCINATE [Suspect]
     Active Substance: HYDROCORTISONE SODIUM SUCCINATE
     Indication: Rheumatoid arthritis
     Route: 048
  286. HYDROCORTISONE SODIUM SUCCINATE [Suspect]
     Active Substance: HYDROCORTISONE SODIUM SUCCINATE
     Route: 065
  287. OXYCODONE TEREPHTHALATE [Suspect]
     Active Substance: OXYCODONE TEREPHTHALATE
     Indication: Product used for unknown indication
     Route: 016
  288. OXYCODONE TEREPHTHALATE [Suspect]
     Active Substance: OXYCODONE TEREPHTHALATE
  289. HYDROCORTISONE [Suspect]
     Active Substance: HYDROCORTISONE
     Indication: Rheumatoid arthritis
     Route: 048
  290. HYDROCORTISONE [Suspect]
     Active Substance: HYDROCORTISONE
  291. HYDROCORTISONE [Suspect]
     Active Substance: HYDROCORTISONE
     Route: 058
  292. HYDROCORTISONE [Suspect]
     Active Substance: HYDROCORTISONE
     Route: 061
  293. HYDROCORTISONE [Suspect]
     Active Substance: HYDROCORTISONE
     Route: 003
  294. HYDROCORTISONE [Suspect]
     Active Substance: HYDROCORTISONE
     Route: 048
  295. HYDROCORTISONE [Suspect]
     Active Substance: HYDROCORTISONE
  296. HYDROCORTISONE [Suspect]
     Active Substance: HYDROCORTISONE
     Route: 003
  297. HYDROCORTISONE [Suspect]
     Active Substance: HYDROCORTISONE
     Route: 061
  298. HYDROCORTISONE [Suspect]
     Active Substance: HYDROCORTISONE
     Route: 058
  299. HYDROCORTISONE [Suspect]
     Active Substance: HYDROCORTISONE
     Dosage: TOPICAL
  300. HYDROCORTISONE [Suspect]
     Active Substance: HYDROCORTISONE
     Route: 058
  301. HYDROCORTISONE [Suspect]
     Active Substance: HYDROCORTISONE
     Route: 048
  302. HYDROCORTISONE [Suspect]
     Active Substance: HYDROCORTISONE
  303. PREGABALIN [Suspect]
     Active Substance: PREGABALIN
     Indication: Product used for unknown indication
     Route: 065
  304. PREDNISONE [Suspect]
     Active Substance: PREDNISONE
     Indication: Condition aggravated
     Route: 048
  305. PREDNISONE [Suspect]
     Active Substance: PREDNISONE
     Indication: Psoriatic arthropathy
     Route: 048
  306. PREDNISONE [Suspect]
     Active Substance: PREDNISONE
     Indication: Rheumatoid arthritis
     Route: 048
  307. PREDNISONE [Suspect]
     Active Substance: PREDNISONE
     Route: 048
  308. PREDNISONE [Suspect]
     Active Substance: PREDNISONE
     Route: 065
  309. PREDNISONE [Suspect]
     Active Substance: PREDNISONE
     Route: 065
  310. PREDNISONE [Suspect]
     Active Substance: PREDNISONE
     Route: 048
  311. PREDNISONE [Suspect]
     Active Substance: PREDNISONE
     Route: 065
  312. PREDNISONE [Suspect]
     Active Substance: PREDNISONE
     Route: 065
  313. PREDNISONE [Suspect]
     Active Substance: PREDNISONE
     Route: 048
  314. PREDNISONE [Suspect]
     Active Substance: PREDNISONE
     Route: 065
  315. PREDNISONE [Suspect]
     Active Substance: PREDNISONE
     Route: 065
  316. PREDNISONE [Suspect]
     Active Substance: PREDNISONE
     Route: 065
  317. CORTISONE ACETATE [Suspect]
     Active Substance: CORTISONE ACETATE
     Indication: Rheumatoid arthritis
     Route: 048
  318. CORTISONE ACETATE [Suspect]
     Active Substance: CORTISONE ACETATE
     Route: 003
  319. CORTISONE ACETATE [Suspect]
     Active Substance: CORTISONE ACETATE
     Route: 058
  320. CORTISONE ACETATE [Suspect]
     Active Substance: CORTISONE ACETATE
     Route: 048
  321. CORTISONE ACETATE [Suspect]
     Active Substance: CORTISONE ACETATE
  322. PREDNISONE [Suspect]
     Active Substance: PREDNISONE
     Indication: Product used for unknown indication
     Route: 048
  323. EMEND [Suspect]
     Active Substance: APREPITANT
     Indication: Product used for unknown indication
     Route: 048
  324. EMEND [Suspect]
     Active Substance: APREPITANT
     Route: 065
  325. EMEND [Suspect]
     Active Substance: APREPITANT
     Route: 042
  326. RITUXIMAB [Suspect]
     Active Substance: RITUXIMAB
     Indication: Rheumatoid arthritis
     Route: 042
  327. RITUXIMAB [Suspect]
     Active Substance: RITUXIMAB
     Route: 058
  328. RITUXIMAB [Suspect]
     Active Substance: RITUXIMAB
     Route: 041
  329. HYDROXYCHLOROQUINE [Suspect]
     Active Substance: HYDROXYCHLOROQUINE
     Indication: Rheumatoid arthritis
  330. HYDROXYCHLOROQUINE [Suspect]
     Active Substance: HYDROXYCHLOROQUINE
  331. DICLOFENAC POTASSIUM [Suspect]
     Active Substance: DICLOFENAC POTASSIUM
     Indication: Product used for unknown indication
  332. DICLOFENAC POTASSIUM [Suspect]
     Active Substance: DICLOFENAC POTASSIUM
     Route: 048
  333. DICLOFENAC POTASSIUM [Suspect]
     Active Substance: DICLOFENAC POTASSIUM
     Route: 048
  334. TOFACITINIB [Suspect]
     Active Substance: TOFACITINIB
     Indication: Rheumatoid arthritis
  335. TOFACITINIB [Suspect]
     Active Substance: TOFACITINIB
     Indication: Psoriatic arthropathy
     Route: 048
  336. CORTISONE ACETATE [Suspect]
     Active Substance: CORTISONE ACETATE
     Indication: Rheumatoid arthritis
     Route: 058
  337. CORTISONE ACETATE [Suspect]
     Active Substance: CORTISONE ACETATE
     Route: 048
  338. CORTISONE ACETATE [Suspect]
     Active Substance: CORTISONE ACETATE
     Route: 048
  339. CORTISONE ACETATE [Suspect]
     Active Substance: CORTISONE ACETATE
     Route: 061
  340. CORTISONE ACETATE [Suspect]
     Active Substance: CORTISONE ACETATE
     Route: 003
  341. CORTISONE ACETATE [Suspect]
     Active Substance: CORTISONE ACETATE
     Route: 061
  342. CORTISONE ACETATE [Suspect]
     Active Substance: CORTISONE ACETATE
     Route: 048
  343. CORTISONE ACETATE [Suspect]
     Active Substance: CORTISONE ACETATE
     Route: 048
  344. CORTISONE ACETATE [Suspect]
     Active Substance: CORTISONE ACETATE
     Route: 003
  345. CORTISONE ACETATE [Suspect]
     Active Substance: CORTISONE ACETATE
     Route: 058
  346. CORTISONE ACETATE [Suspect]
     Active Substance: CORTISONE ACETATE
     Route: 048
  347. CORTISONE ACETATE [Suspect]
     Active Substance: CORTISONE ACETATE
     Route: 003
  348. CORTISONE ACETATE [Suspect]
     Active Substance: CORTISONE ACETATE
     Route: 058
  349. CORTISONE ACETATE [Suspect]
     Active Substance: CORTISONE ACETATE
     Route: 048
  350. CALCIUM GLUBIONATE [Suspect]
     Active Substance: CALCIUM GLUBIONATE
     Indication: Product used for unknown indication
  351. FLUMETHASONE PIVALATE [Suspect]
     Active Substance: FLUMETHASONE PIVALATE
     Indication: Rheumatoid arthritis
  352. TRAMADOL HYDROCHLORIDE [Suspect]
     Active Substance: TRAMADOL HYDROCHLORIDE
     Indication: Product used for unknown indication
  353. COD LIVER OIL [Suspect]
     Active Substance: COD LIVER OIL
     Indication: Product used for unknown indication
  354. ARAVA [Suspect]
     Active Substance: LEFLUNOMIDE
     Indication: Rheumatoid arthritis
     Route: 048
  355. SIMPONI [Suspect]
     Active Substance: GOLIMUMAB
     Indication: Psoriatic arthropathy
  356. SIMPONI [Suspect]
     Active Substance: GOLIMUMAB
     Indication: Rheumatoid arthritis
     Route: 058
  357. SIMPONI [Suspect]
     Active Substance: GOLIMUMAB
     Route: 042
  358. SIMPONI [Suspect]
     Active Substance: GOLIMUMAB
     Route: 058
  359. SIMPONI [Suspect]
     Active Substance: GOLIMUMAB
     Route: 058
  360. SIMPONI [Suspect]
     Active Substance: GOLIMUMAB
     Route: 058
  361. SIMPONI [Suspect]
     Active Substance: GOLIMUMAB
     Route: 052
  362. CETIRIZINE HYDROCHLORIDE [Suspect]
     Active Substance: CETIRIZINE HYDROCHLORIDE
     Indication: Product used for unknown indication
     Route: 048
  363. CHLORHEXIDINE GLUCONATE [Suspect]
     Active Substance: CHLORHEXIDINE GLUCONATE
     Indication: Product used for unknown indication
     Route: 061
  364. CHLORHEXIDINE GLUCONATE [Suspect]
     Active Substance: CHLORHEXIDINE GLUCONATE
     Route: 048
  365. CHLORHEXIDINE GLUCONATE [Suspect]
     Active Substance: CHLORHEXIDINE GLUCONATE
     Route: 002
  366. CHLORHEXIDINE GLUCONATE [Suspect]
     Active Substance: CHLORHEXIDINE GLUCONATE
     Route: 065
  367. CHLORHEXIDINE GLUCONATE [Suspect]
     Active Substance: CHLORHEXIDINE GLUCONATE
     Route: 048
  368. CHLORHEXIDINE GLUCONATE [Suspect]
     Active Substance: CHLORHEXIDINE GLUCONATE
     Route: 002
  369. CHLORHEXIDINE GLUCONATE [Suspect]
     Active Substance: CHLORHEXIDINE GLUCONATE
     Dosage: TOPICAL
  370. CHLORHEXIDINE GLUCONATE [Suspect]
     Active Substance: CHLORHEXIDINE GLUCONATE
  371. ENBREL [Suspect]
     Active Substance: ETANERCEPT
     Indication: Psoriatic arthropathy
     Route: 058
  372. ENBREL [Suspect]
     Active Substance: ETANERCEPT
     Indication: Rheumatoid arthritis
     Route: 058
  373. ENBREL [Suspect]
     Active Substance: ETANERCEPT
     Route: 058
  374. ENBREL [Suspect]
     Active Substance: ETANERCEPT
     Route: 058
  375. ENBREL [Suspect]
     Active Substance: ETANERCEPT
     Route: 058
  376. ENBREL [Suspect]
     Active Substance: ETANERCEPT
     Route: 058
  377. ENBREL [Suspect]
     Active Substance: ETANERCEPT
  378. HYDROCORTISONE SODIUM SUCCINATE [Suspect]
     Active Substance: HYDROCORTISONE SODIUM SUCCINATE
     Indication: Rheumatoid arthritis
     Dosage: POWDER FOR SOLUTION INTRAMUSCULAR
     Route: 048
  379. VOLTAREN [Suspect]
     Active Substance: DICLOFENAC SODIUM
     Indication: Product used for unknown indication
  380. NEOMYCIN [Suspect]
     Active Substance: NEOMYCIN
     Indication: Product used for unknown indication
     Route: 049
  381. CETIRIZINE HYDROCHLORIDE\PSEUDOEPHEDRINE HYDROCHLORIDE [Suspect]
     Active Substance: CETIRIZINE HYDROCHLORIDE\PSEUDOEPHEDRINE HYDROCHLORIDE
     Indication: Rheumatoid arthritis
     Route: 048
  382. CETIRIZINE HYDROCHLORIDE\PSEUDOEPHEDRINE HYDROCHLORIDE [Suspect]
     Active Substance: CETIRIZINE HYDROCHLORIDE\PSEUDOEPHEDRINE HYDROCHLORIDE
  383. CETIRIZINE HYDROCHLORIDE\PSEUDOEPHEDRINE HYDROCHLORIDE [Suspect]
     Active Substance: CETIRIZINE HYDROCHLORIDE\PSEUDOEPHEDRINE HYDROCHLORIDE
     Route: 048
  384. CETIRIZINE HYDROCHLORIDE\PSEUDOEPHEDRINE HYDROCHLORIDE [Suspect]
     Active Substance: CETIRIZINE HYDROCHLORIDE\PSEUDOEPHEDRINE HYDROCHLORIDE
     Route: 065
  385. CETIRIZINE HYDROCHLORIDE\PSEUDOEPHEDRINE HYDROCHLORIDE [Suspect]
     Active Substance: CETIRIZINE HYDROCHLORIDE\PSEUDOEPHEDRINE HYDROCHLORIDE
  386. LEFLUNOMIDE [Suspect]
     Active Substance: LEFLUNOMIDE
     Indication: Rheumatoid arthritis
     Route: 048
  387. LEFLUNOMIDE [Suspect]
     Active Substance: LEFLUNOMIDE
     Route: 065
  388. LEFLUNOMIDE [Suspect]
     Active Substance: LEFLUNOMIDE
     Route: 048
  389. LEFLUNOMIDE [Suspect]
     Active Substance: LEFLUNOMIDE
     Route: 065
  390. PERIOGARD [Suspect]
     Active Substance: CHLORHEXIDINE GLUCONATE
     Indication: Product used for unknown indication
     Route: 048
  391. PERIOGARD [Suspect]
     Active Substance: CHLORHEXIDINE GLUCONATE
     Route: 016
  392. PERIOGARD [Suspect]
     Active Substance: CHLORHEXIDINE GLUCONATE
     Route: 002
  393. PERIOGARD [Suspect]
     Active Substance: CHLORHEXIDINE GLUCONATE
     Route: 016
  394. ISOPROPYL ALCOHOL [Suspect]
     Active Substance: ISOPROPYL ALCOHOL
     Indication: Product used for unknown indication
     Dosage: UNK (LIQUID TOPICAL)
     Route: 061
  395. ISOPROPYL ALCOHOL [Suspect]
     Active Substance: ISOPROPYL ALCOHOL
     Route: 061
  396. ISOPROPYL ALCOHOL [Suspect]
     Active Substance: ISOPROPYL ALCOHOL
     Route: 061
  397. DOXYCYCLINE [Suspect]
     Active Substance: DOXYCYCLINE
     Indication: Product used for unknown indication
     Route: 065
  398. DOXYCYCLINE [Suspect]
     Active Substance: DOXYCYCLINE
  399. TOCILIZUMAB [Suspect]
     Active Substance: TOCILIZUMAB
     Indication: Rheumatoid arthritis
     Route: 058
  400. OTEZLA [Suspect]
     Active Substance: APREMILAST
     Indication: Product used for unknown indication
     Route: 048
  401. OTEZLA [Suspect]
     Active Substance: APREMILAST
     Route: 048
  402. OTEZLA [Suspect]
     Active Substance: APREMILAST
     Dosage: BID
     Route: 048
  403. FLUMETHASONE PIVALATE [Suspect]
     Active Substance: FLUMETHASONE PIVALATE
     Indication: Product used for unknown indication
     Route: 058
  404. SULFAMETHOXAZOLE\TRIMETHOPRIM [Suspect]
     Active Substance: SULFAMETHOXAZOLE\TRIMETHOPRIM
     Indication: Product used for unknown indication
  405. PANTOPRAZOLE SODIUM [Suspect]
     Active Substance: PANTOPRAZOLE SODIUM
     Indication: Product used for unknown indication
  406. USTEKINUMAB [Suspect]
     Active Substance: USTEKINUMAB
     Indication: Psoriatic arthropathy
     Route: 058
  407. USTEKINUMAB [Suspect]
     Active Substance: USTEKINUMAB
  408. VOLTAREN [Suspect]
     Active Substance: DICLOFENAC SODIUM
     Indication: Product used for unknown indication
     Route: 058
  409. VOLTAREN [Suspect]
     Active Substance: DICLOFENAC SODIUM
     Route: 058
  410. VOLTAREN [Suspect]
     Active Substance: DICLOFENAC SODIUM
     Route: 047
  411. VOLTAREN [Suspect]
     Active Substance: DICLOFENAC SODIUM
     Route: 058
  412. VOLTAREN [Suspect]
     Active Substance: DICLOFENAC SODIUM
     Dosage: QD
     Route: 058
  413. VOLTAREN [Suspect]
     Active Substance: DICLOFENAC SODIUM
     Route: 048
  414. VOLTAREN [Suspect]
     Active Substance: DICLOFENAC SODIUM
  415. VOLTAREN [Suspect]
     Active Substance: DICLOFENAC SODIUM
  416. VOLTAREN [Suspect]
     Active Substance: DICLOFENAC SODIUM
     Route: 048
  417. CERTOLIZUMAB PEGOL [Suspect]
     Active Substance: CERTOLIZUMAB PEGOL
     Indication: Product used for unknown indication
  418. PSEUDOEPHEDRINE [Suspect]
     Active Substance: PSEUDOEPHEDRINE
     Indication: Product used for unknown indication
  419. SULFAMETHOXAZOLE [Suspect]
     Active Substance: SULFAMETHOXAZOLE
     Indication: Product used for unknown indication
  420. FOSAMAX [Suspect]
     Active Substance: ALENDRONATE SODIUM
     Indication: Rheumatoid arthritis
     Route: 048
  421. FOSAMAX [Suspect]
     Active Substance: ALENDRONATE SODIUM
     Route: 048
  422. FOSAMAX [Suspect]
     Active Substance: ALENDRONATE SODIUM
  423. CELEBREX [Suspect]
     Active Substance: CELECOXIB
     Indication: Product used for unknown indication
  424. CELEBREX [Suspect]
     Active Substance: CELECOXIB
  425. STELARA [Suspect]
     Active Substance: USTEKINUMAB
     Indication: Product used for unknown indication
  426. STELARA [Suspect]
     Active Substance: USTEKINUMAB
     Route: 058
  427. STELARA [Suspect]
     Active Substance: USTEKINUMAB
  428. STELARA [Suspect]
     Active Substance: USTEKINUMAB
     Route: 058
  429. STELARA [Suspect]
     Active Substance: USTEKINUMAB
     Route: 042
  430. STELARA [Suspect]
     Active Substance: USTEKINUMAB
     Route: 058
  431. STELARA [Suspect]
     Active Substance: USTEKINUMAB
     Route: 042
  432. DOXYCYCLINE HYCLATE [Suspect]
     Active Substance: DOXYCYCLINE HYCLATE
     Indication: Product used for unknown indication
     Route: 065
  433. INFLIXIMAB [Suspect]
     Active Substance: INFLIXIMAB
     Indication: Rheumatoid arthritis
     Route: 042
  434. INFLIXIMAB [Suspect]
     Active Substance: INFLIXIMAB
     Route: 042
  435. APREMILAST [Suspect]
     Active Substance: APREMILAST
     Indication: Product used for unknown indication
     Route: 042
  436. APREMILAST [Suspect]
     Active Substance: APREMILAST
     Route: 042
  437. APREMILAST [Suspect]
     Active Substance: APREMILAST
  438. CELECOXIB [Suspect]
     Active Substance: CELECOXIB
     Indication: Product used for unknown indication
     Route: 065
  439. CELECOXIB [Suspect]
     Active Substance: CELECOXIB
     Route: 065
  440. CETIRIZINE HYDROCHLORIDE [Suspect]
     Active Substance: CETIRIZINE HYDROCHLORIDE
     Indication: Rheumatoid arthritis
     Route: 065
  441. CETIRIZINE HYDROCHLORIDE [Suspect]
     Active Substance: CETIRIZINE HYDROCHLORIDE
     Dosage: QD
     Route: 048
  442. CETIRIZINE HYDROCHLORIDE [Suspect]
     Active Substance: CETIRIZINE HYDROCHLORIDE
     Route: 048
  443. CETIRIZINE HYDROCHLORIDE [Suspect]
     Active Substance: CETIRIZINE HYDROCHLORIDE
     Route: 048
  444. CETIRIZINE HYDROCHLORIDE [Suspect]
     Active Substance: CETIRIZINE HYDROCHLORIDE
     Route: 065
  445. CETIRIZINE HYDROCHLORIDE [Suspect]
     Active Substance: CETIRIZINE HYDROCHLORIDE
     Route: 048
  446. CETIRIZINE HYDROCHLORIDE [Suspect]
     Active Substance: CETIRIZINE HYDROCHLORIDE
     Route: 048
  447. CETIRIZINE HYDROCHLORIDE [Suspect]
     Active Substance: CETIRIZINE HYDROCHLORIDE
     Route: 048
  448. CETIRIZINE HYDROCHLORIDE [Suspect]
     Active Substance: CETIRIZINE HYDROCHLORIDE
     Dosage: QD
     Route: 048
  449. CALTRATE [Suspect]
     Active Substance: CALCIUM CARBONATE
     Indication: Product used for unknown indication
     Route: 065
  450. CALTRATE [Suspect]
     Active Substance: CALCIUM CARBONATE
     Route: 065
  451. PREGABALIN [Suspect]
     Active Substance: PREGABALIN
     Indication: Product used for unknown indication
  452. FOLIC ACID [Suspect]
     Active Substance: FOLIC ACID
     Indication: Rheumatoid arthritis
  453. FOLIC ACID [Suspect]
     Active Substance: FOLIC ACID
  454. FOLIC ACID [Suspect]
     Active Substance: FOLIC ACID
     Route: 048
  455. FOLIC ACID [Suspect]
     Active Substance: FOLIC ACID
  456. FOLIC ACID [Suspect]
     Active Substance: FOLIC ACID
  457. FOLIC ACID [Suspect]
     Active Substance: FOLIC ACID
  458. FOLIC ACID [Suspect]
     Active Substance: FOLIC ACID
     Route: 058
  459. FOLIC ACID [Suspect]
     Active Substance: FOLIC ACID
     Route: 048
  460. FOLIC ACID [Suspect]
     Active Substance: FOLIC ACID
     Route: 058
  461. FOLIC ACID [Suspect]
     Active Substance: FOLIC ACID
  462. FOLIC ACID [Suspect]
     Active Substance: FOLIC ACID
     Route: 058
  463. FOLIC ACID [Suspect]
     Active Substance: FOLIC ACID
     Route: 048
  464. FOLIC ACID [Suspect]
     Active Substance: FOLIC ACID
  465. FOLIC ACID [Suspect]
     Active Substance: FOLIC ACID
  466. FOLIC ACID [Suspect]
     Active Substance: FOLIC ACID
  467. GOLIMUMAB [Suspect]
     Active Substance: GOLIMUMAB
     Indication: Rheumatoid arthritis
  468. GOLIMUMAB [Suspect]
     Active Substance: GOLIMUMAB
     Route: 058
  469. CORTISONE [Suspect]
     Active Substance: CORTISONE
     Indication: Rheumatoid arthritis
     Route: 003
  470. CORTISONE [Suspect]
     Active Substance: CORTISONE
     Route: 048
  471. CORTISONE [Suspect]
     Active Substance: CORTISONE
     Route: 003
  472. CORTISONE [Suspect]
     Active Substance: CORTISONE
     Route: 003
  473. CORTISONE [Suspect]
     Active Substance: CORTISONE
     Route: 058
  474. CORTISONE [Suspect]
     Active Substance: CORTISONE
     Route: 048
  475. CORTISONE [Suspect]
     Active Substance: CORTISONE
     Route: 048
  476. CORTISONE [Suspect]
     Active Substance: CORTISONE
     Route: 058
  477. CORTISONE [Suspect]
     Active Substance: CORTISONE
     Route: 061

REACTIONS (93)
  - Systemic lupus erythematosus [Fatal]
  - Rheumatoid factor positive [Fatal]
  - Weight increased [Fatal]
  - Rash [Fatal]
  - Swelling [Fatal]
  - Abdominal discomfort [Fatal]
  - Glossodynia [Fatal]
  - Sinusitis [Fatal]
  - Drug hypersensitivity [Fatal]
  - C-reactive protein abnormal [Fatal]
  - Deep vein thrombosis postoperative [Fatal]
  - Sleep disorder due to general medical condition, insomnia type [Fatal]
  - Sleep disorder [Fatal]
  - Road traffic accident [Fatal]
  - Lung disorder [Fatal]
  - C-reactive protein [Fatal]
  - Decreased appetite [Fatal]
  - Inflammation [Fatal]
  - Gastrointestinal disorder [Fatal]
  - Vomiting [Fatal]
  - Urticaria [Fatal]
  - Duodenal ulcer perforation [Fatal]
  - Rheumatoid arthritis [Fatal]
  - Pericarditis [Fatal]
  - Fibromyalgia [Fatal]
  - Peripheral swelling [Fatal]
  - Musculoskeletal pain [Fatal]
  - Hypoaesthesia [Fatal]
  - Helicobacter infection [Fatal]
  - Stomatitis [Fatal]
  - Joint swelling [Fatal]
  - Autoimmune disorder [Fatal]
  - Asthenia [Fatal]
  - Wound [Fatal]
  - Synovitis [Fatal]
  - Muscle injury [Fatal]
  - Pyrexia [Fatal]
  - Lower limb fracture [Fatal]
  - General physical health deterioration [Fatal]
  - Infection [Fatal]
  - Liver disorder [Fatal]
  - Blood cholesterol increased [Fatal]
  - Folliculitis [Fatal]
  - C-reactive protein [Fatal]
  - Impaired healing [Fatal]
  - Injury [Fatal]
  - Facet joint syndrome [Fatal]
  - Headache [Fatal]
  - Hypertension [Fatal]
  - Gait inability [Fatal]
  - Lip dry [Fatal]
  - Dry mouth [Fatal]
  - Hand deformity [Fatal]
  - Night sweats [Fatal]
  - Rheumatic fever [Fatal]
  - Infusion related reaction [Fatal]
  - Insomnia [Fatal]
  - Chest pain [Fatal]
  - Swollen joint count increased [Fatal]
  - Joint range of motion decreased [Fatal]
  - Maternal exposure during pregnancy [Fatal]
  - Hip arthroplasty [Fatal]
  - Anti-cyclic citrullinated peptide antibody positive [Fatal]
  - Hypersensitivity [Fatal]
  - Musculoskeletal stiffness [Fatal]
  - Irritable bowel syndrome [Fatal]
  - Pain [Fatal]
  - Off label use [Fatal]
  - Type 2 diabetes mellitus [Fatal]
  - Ill-defined disorder [Fatal]
  - Pruritus [Fatal]
  - Malaise [Fatal]
  - Blister [Fatal]
  - Fatigue [Fatal]
  - Wheezing [Fatal]
  - Diarrhoea [Fatal]
  - Confusional state [Fatal]
  - Discomfort [Fatal]
  - Arthralgia [Fatal]
  - Anxiety [Fatal]
  - Contusion [Fatal]
  - Osteoarthritis [Fatal]
  - Liver injury [Fatal]
  - Mobility decreased [Fatal]
  - Pemphigus [Fatal]
  - Hepatic enzyme increased [Fatal]
  - Psoriatic arthropathy [Fatal]
  - Arthropathy [Fatal]
  - Sciatica [Fatal]
  - Asthma [Fatal]
  - Lower respiratory tract infection [Fatal]
  - Abdominal pain upper [Fatal]
  - Live birth [Fatal]
